FAERS Safety Report 19070720 (Version 1)
Quarter: 2021Q1

REPORT INFORMATION
  Report Type: Report from Study
  Country: CA (occurrence: CA)
  Receive Date: 20210330
  Receipt Date: 20210330
  Transmission Date: 20210420
  Serious: No
  Sender: FDA-Public Use
  Company Number: CA-JNJFOC-20201202287

PATIENT
  Age: 69 Year
  Sex: Female
  Weight: 102.1 kg

DRUGS (1)
  1. REMICADE [Suspect]
     Active Substance: INFLIXIMAB
     Indication: CROHN^S DISEASE
     Route: 042
     Dates: start: 20160620

REACTIONS (3)
  - White blood cell count increased [Not Recovered/Not Resolved]
  - Lymph nodes scan abnormal [Recovering/Resolving]
  - Lymphocyte count decreased [Recovering/Resolving]
